FAERS Safety Report 4296494-5 (Version None)
Quarter: 2004Q1

REPORT INFORMATION
  Report Type: 
  Country: None (occurrence: None)
  Receive Date: 20040126
  Receipt Date: 20031022
  Transmission Date: 20041129
  Serious: No
  Sender: FDA-Public Use
  Company Number: USA030845209

PATIENT
  Age: 13 Year
  Sex: Female
  Weight: 48 kg

DRUGS (1)
  1. STRATTERA [Suspect]
     Indication: ATTENTION DEFICIT/HYPERACTIVITY DISORDER
     Dosage: 60 MG/AT BEDTIME
     Dates: start: 20030301

REACTIONS (4)
  - INSOMNIA [None]
  - MENSTRUAL DISORDER [None]
  - SOMNOLENCE [None]
  - VON WILLEBRAND'S DISEASE [None]
